FAERS Safety Report 9919263 (Version 1)
Quarter: 2014Q1

REPORT INFORMATION
  Report Type: Report from Study
  Country: RU (occurrence: RU)
  Receive Date: 20140224
  Receipt Date: 20140224
  Transmission Date: 20141002
  Serious: Yes (Other)
  Sender: FDA-Public Use
  Company Number: RU-US-EMD SERONO, INC.-7251741

PATIENT
  Sex: Female
  Weight: 61 kg

DRUGS (4)
  1. CETROTIDE (CETRORELIX ACETATE FOR INJECTION) [Suspect]
     Indication: INFERTILITY FEMALE
  2. CRINONE [Suspect]
     Indication: PREGNANCY
  3. MENOPUR                            /01277604/ [Concomitant]
     Indication: OVULATION INDUCTION
  4. CHORAGON [Concomitant]
     Indication: OVULATION INDUCTION

REACTIONS (1)
  - Abortion [Unknown]
